FAERS Safety Report 19589831 (Version 1)
Quarter: 2021Q3

REPORT INFORMATION
  Report Type: Spontaneous
  Country: US (occurrence: US)
  Receive Date: 20210721
  Receipt Date: 20210721
  Transmission Date: 20211014
  Serious: No
  Sender: FDA-Public Use
  Company Number: US-PFIZER INC-2021766817

PATIENT
  Age: 69 Year
  Sex: Female

DRUGS (1)
  1. METHOTREXATE SODIUM. [Suspect]
     Active Substance: METHOTREXATE SODIUM
     Dosage: UNK
     Dates: end: 202106

REACTIONS (4)
  - Fibromyalgia [Unknown]
  - Drug ineffective [Unknown]
  - Discouragement [Unknown]
  - Vomiting [Unknown]

NARRATIVE: CASE EVENT DATE: 202106
